FAERS Safety Report 4415069-8 (Version None)
Quarter: 2004Q3

REPORT INFORMATION
  Report Type: 
  Country: None (occurrence: None)
  Receive Date: 20040803
  Receipt Date: 20040803
  Transmission Date: 20050211
  Serious: Yes (Life-Threatening)
  Sender: FDA-Public Use
  Company Number: None

PATIENT
  Age: 60 Year
  Sex: Male
  Weight: 104.3273 kg

DRUGS (1)
  1. COREG [Suspect]
     Indication: CARDIAC DISORDER
     Dosage: 1 A DAY
     Dates: start: 20000101, end: 20010101

REACTIONS (4)
  - ASTHENIA [None]
  - CARDIAC DISORDER [None]
  - EJECTION FRACTION DECREASED [None]
  - PHARMACEUTICAL PRODUCT COMPLAINT [None]
